FAERS Safety Report 5577972-5 (Version None)
Quarter: 2007Q4

REPORT INFORMATION
  Report Type: 
  Country: None (occurrence: None)
  Receive Date: 20071231
  Receipt Date: 20071221
  Transmission Date: 20080405
  Serious: Yes (Hospitalization)
  Sender: FDA-Public Use
  Company Number: CA-ROCHE-538416

PATIENT
  Age: 69 Year
  Sex: Male
  Weight: 67 kg

DRUGS (8)
  1. CAPECITABINE [Suspect]
     Dosage: TEMPORARILY INTERRUPTED, FORM: PILL
     Route: 048
     Dates: start: 20071127
  2. BEVACIZUMAB [Suspect]
     Dosage: TEMPORARILY INTERRUPTED
     Route: 042
     Dates: start: 20071127
  3. IRINOTECAN [Suspect]
     Dosage: TEMPORARILY INTERRUPTED
     Route: 042
     Dates: start: 20071127
  4. RAMIPRIL [Concomitant]
     Dosage: TOTAL DAILY DOSE: 2.5
     Dates: start: 19820101
  5. 1 CONCOMITANT DRUG [Concomitant]
     Dosage: DRUG NAME: AMILDRIDE, TOTAL DAILY DOSE: 5150
     Dates: start: 19820101
  6. 1 CONCOMITANT DRUG [Concomitant]
     Dosage: DRUG NAME: NOVOTIN 30/ 70
     Dates: start: 19820101
  7. PROCHLORPERAZINE [Concomitant]
     Dates: start: 20071127
  8. 1 CONCOMITANT DRUG [Concomitant]
     Dates: start: 20071218

REACTIONS (1)
  - SMALL INTESTINAL OBSTRUCTION [None]
